FAERS Safety Report 9854231 (Version 1)
Quarter: 2014Q1

REPORT INFORMATION
  Report Type: Spontaneous
  Country: US (occurrence: US)
  Receive Date: 20140130
  Receipt Date: 20140130
  Transmission Date: 20141002
  Serious: Yes (Hospitalization)
  Sender: FDA-Public Use
  Company Number: US-ROCHE-1340221

PATIENT
  Sex: Female

DRUGS (2)
  1. AVASTIN [Suspect]
     Indication: OVARIAN CANCER
     Route: 065
  2. GEMCITABINE [Concomitant]
     Indication: OVARIAN CANCER

REACTIONS (2)
  - Metastatic neoplasm [Unknown]
  - Small intestinal obstruction [Unknown]
